FAERS Safety Report 25035962 (Version 2)
Quarter: 2025Q2

REPORT INFORMATION
  Report Type: Report from Study
  Country: US (occurrence: US)
  Receive Date: 20250304
  Receipt Date: 20250416
  Transmission Date: 20250716
  Serious: Yes (Hospitalization, Other)
  Sender: JOHNSON AND JOHNSON
  Company Number: US-JNJFOC-20250275016

PATIENT
  Age: 44 Year
  Sex: Male
  Weight: 86.18 kg

DRUGS (11)
  1. TREMFYA [Suspect]
     Active Substance: GUSELKUMAB
     Indication: Psoriasis
     Dosage: WEEK 0
     Route: 058
     Dates: start: 202405
  2. TREMFYA [Suspect]
     Active Substance: GUSELKUMAB
     Route: 058
     Dates: start: 20240616
  3. TREMFYA [Suspect]
     Active Substance: GUSELKUMAB
     Dosage: RECENT DOSE: 22-FEB-2025
     Route: 058
  4. PREGABALIN [Concomitant]
     Active Substance: PREGABALIN
  5. ETODOLAC [Concomitant]
     Active Substance: ETODOLAC
  6. LAMICTAL [Concomitant]
     Active Substance: LAMOTRIGINE
  7. LEXAPRO [Concomitant]
     Active Substance: ESCITALOPRAM OXALATE
  8. AMBIEN [Concomitant]
     Active Substance: ZOLPIDEM TARTRATE
  9. ATIVAN [Concomitant]
     Active Substance: LORAZEPAM
  10. ACETAMINOPHEN [Concomitant]
     Active Substance: ACETAMINOPHEN
  11. VITAMIN D3 [Concomitant]
     Active Substance: CHOLECALCIFEROL

REACTIONS (5)
  - Pneumonia [Recovered/Resolved]
  - Hypertrophic scar [Unknown]
  - Nasopharyngitis [Unknown]
  - Psoriasis [Unknown]
  - Arthralgia [Unknown]
